FAERS Safety Report 11885761 (Version 1)
Quarter: 2016Q1

REPORT INFORMATION
  Report Type: Spontaneous
  Country: DE (occurrence: DE)
  Receive Date: 20160104
  Receipt Date: 20160104
  Transmission Date: 20160526
  Serious: Yes (Other)
  Sender: FDA-Public Use
  Company Number: DE-PFIZER INC-2015477109

PATIENT
  Sex: Female

DRUGS (1)
  1. CELEBREX [Suspect]
     Active Substance: CELECOXIB
     Dosage: UNK

REACTIONS (5)
  - Anaphylactic shock [Recovered/Resolved]
  - Eye swelling [Unknown]
  - Skin disorder [Unknown]
  - Swollen tongue [Unknown]
  - Nasal oedema [Unknown]

NARRATIVE: CASE EVENT DATE: 20041230
